FAERS Safety Report 6565170-8 (Version None)
Quarter: 2010Q1

REPORT INFORMATION
  Report Type: 
  Country: None (occurrence: None)
  Receive Date: 20100201
  Receipt Date: 20100126
  Transmission Date: 20100710
  Serious: Yes (Hospitalization)
  Sender: FDA-Public Use
  Company Number: B0629328A

PATIENT
  Sex: Female

DRUGS (8)
  1. AUGMENTIN '125' [Suspect]
     Indication: BRONCHITIS
     Dosage: 2G PER DAY
     Route: 048
     Dates: start: 20090105, end: 20090106
  2. TAREG [Concomitant]
     Dosage: 80MG PER DAY
     Route: 048
  3. LOBIVON [Concomitant]
     Dosage: 250MCG PER DAY
     Route: 048
  4. LANSOX [Concomitant]
     Dosage: 30MG PER DAY
     Route: 048
  5. RIVOTRIL [Concomitant]
     Route: 048
  6. KEPPRA [Concomitant]
     Dosage: 1.5G PER DAY
     Route: 048
  7. FLUIFORT [Concomitant]
     Dosage: 2.7G PER DAY
     Route: 048
  8. CLEXANE [Concomitant]
     Dosage: 4000IU PER DAY
     Route: 058

REACTIONS (2)
  - FORMICATION [None]
  - RASH MACULO-PAPULAR [None]
